FAERS Safety Report 23628955 (Version 17)
Quarter: 2025Q4

REPORT INFORMATION
  Report Type: Spontaneous
  Country: EU (occurrence: EU)
  Receive Date: 20240313
  Receipt Date: 20251216
  Transmission Date: 20260117
  Serious: Yes (Death, Life-Threatening, Hospitalization, Other)
  Sender: PURDUE
  Company Number: EU-ELERTE-202400010

PATIENT
  Age: 34 Year
  Sex: Male
  Weight: 79 kg

DRUGS (131)
  1. OXYCONTIN [Interacting]
     Active Substance: OXYCODONE HYDROCHLORIDE
     Indication: Product used for unknown indication
     Dosage: UNK
     Route: 065
  2. OXYCODONE HYDROCHLORIDE [Suspect]
     Active Substance: OXYCODONE HYDROCHLORIDE
     Indication: Product used for unknown indication
     Dosage: UNK
     Route: 065
  3. MORPHINE SULFATE [Interacting]
     Active Substance: MORPHINE SULFATE
     Indication: Product used for unknown indication
     Dosage: UNK
     Route: 065
  4. IBUPROFEN [Suspect]
     Active Substance: IBUPROFEN
     Indication: Back pain
     Dosage: UNK THERAPY START DATE: //2016 THERAPY END DATE: //2016
     Route: 048
     Dates: start: 2016, end: 2016
  5. IBUPROFEN [Suspect]
     Active Substance: IBUPROFEN
     Indication: Back pain
     Dosage: UNK THERAPY START DATE: //2016 THERAPY END DATE: //2016
     Route: 048
     Dates: start: 2016, end: 2016
  6. CLOTIAZEPAM [Interacting]
     Active Substance: CLOTIAZEPAM
     Indication: Product used for unknown indication
     Dosage: UNK
     Route: 065
  7. CLOTIAZEPAM [Interacting]
     Active Substance: CLOTIAZEPAM
     Indication: Product used for unknown indication
     Dosage: UNK
     Route: 065
  8. CLOTIAZEPAM [Interacting]
     Active Substance: CLOTIAZEPAM
     Dosage: UNK
     Route: 048
     Dates: start: 20160830, end: 2016
  9. CLOTIAZEPAM [Interacting]
     Active Substance: CLOTIAZEPAM
     Dosage: 3 TABLETS PER DAY FOR A MONTH
     Route: 065
  10. CLOTIAZEPAM [Interacting]
     Active Substance: CLOTIAZEPAM
     Dosage: UNK
     Route: 065
  11. KETAMINE [Suspect]
     Active Substance: KETAMINE
     Indication: Back pain
     Dosage: UNK THERAPY START DATE //2016 THERAPY END DATE: //2016
     Route: 065
     Dates: start: 2016, end: 2016
  12. KETAMINE [Suspect]
     Active Substance: KETAMINE
     Indication: Back pain
     Dosage: UNK
     Route: 065
  13. KETAMINE [Suspect]
     Active Substance: KETAMINE
     Indication: Back pain
  14. TRAMADOL HYDROCHLORIDE [Interacting]
     Active Substance: TRAMADOL HYDROCHLORIDE
     Indication: Back pain
     Dosage: THERAPY START DATE: //2016THERAPY END DATE: //2016. THE DOCTOR PRESCRIBED HIM OVER A PERIOD BETWEEN
     Route: 065
     Dates: start: 2016, end: 2016
  15. TRAMADOL HYDROCHLORIDE [Interacting]
     Active Substance: TRAMADOL HYDROCHLORIDE
     Indication: Back pain
     Dosage: UNK
     Route: 065
  16. TRAMADOL HYDROCHLORIDE [Interacting]
     Active Substance: TRAMADOL HYDROCHLORIDE
     Dosage: UNK
     Route: 065
     Dates: start: 20160903, end: 2016
  17. VALIUM [Interacting]
     Active Substance: DIAZEPAM
     Indication: Product used for unknown indication
     Dosage: UNK
     Route: 048
     Dates: start: 20160905, end: 2016
  18. VALIUM [Interacting]
     Active Substance: DIAZEPAM
     Indication: Bipolar disorder
     Dosage: 10 MILLIGRAM
     Route: 065
     Dates: start: 20160902, end: 20160905
  19. VALIUM [Interacting]
     Active Substance: DIAZEPAM
     Indication: Depression
  20. VALIUM [Interacting]
     Active Substance: DIAZEPAM
     Indication: Psychiatric symptom
  21. PRAZEPAM [Interacting]
     Active Substance: PRAZEPAM
     Indication: Product used for unknown indication
     Dosage: UNK
     Route: 048
     Dates: start: 20160902, end: 2016
  22. PRAZEPAM [Interacting]
     Active Substance: PRAZEPAM
     Dosage: UNK
     Route: 065
  23. PRAZEPAM [Interacting]
     Active Substance: PRAZEPAM
     Dosage: UNK
     Route: 065
  24. PRAZEPAM [Interacting]
     Active Substance: PRAZEPAM
     Dosage: 10 MILLIGRAM
     Route: 065
  25. THIOCOLCHICOSIDE [Suspect]
     Active Substance: THIOCOLCHICOSIDE
     Indication: Product used for unknown indication
     Dosage: UNK
     Route: 048
  26. THIOCOLCHICOSIDE [Suspect]
     Active Substance: THIOCOLCHICOSIDE
     Dosage: UNK
     Route: 065
  27. PAROXETINE MESYLATE [Suspect]
     Active Substance: PAROXETINE MESYLATE
     Indication: Back pain
     Dosage: 20 MILLIGRAMTHERAPY START DATE: //2016 THERAPY END DATE: //2016
     Route: 065
     Dates: start: 2016, end: 2016
  28. PAROXETINE MESYLATE [Suspect]
     Active Substance: PAROXETINE MESYLATE
     Indication: Product used for unknown indication
     Dosage: PAROXETINE 20 MG/UNKTHERAPY START DATE: //2016 THERAPY END DATE: //2016
     Route: 048
     Dates: start: 20160829, end: 2016
  29. PAROXETINE MESYLATE [Suspect]
     Active Substance: PAROXETINE MESYLATE
     Indication: Product used for unknown indication
     Dosage: UNK
     Route: 048
     Dates: start: 20160817, end: 2016
  30. PAROXETINE MESYLATE [Suspect]
     Active Substance: PAROXETINE MESYLATE
     Dosage: UNK
     Route: 065
     Dates: start: 201609, end: 20160908
  31. PAROXETINE MESYLATE [Suspect]
     Active Substance: PAROXETINE MESYLATE
     Dosage: 20 MILLIGRAM
     Route: 048
     Dates: start: 20160817, end: 20160908
  32. ETIFOXINE [Suspect]
     Active Substance: ETIFOXINE
     Indication: Product used for unknown indication
     Dosage: UNK
     Route: 048
     Dates: start: 20160810, end: 2016
  33. ETIFOXINE [Suspect]
     Active Substance: ETIFOXINE
     Dosage: 20 MILLIGRAM
     Route: 065
  34. ETIFOXINE [Suspect]
     Active Substance: ETIFOXINE
     Dosage: UNK
     Route: 065
     Dates: start: 201608, end: 20160908
  35. SKENAN [Interacting]
     Active Substance: MORPHINE SULFATE
     Indication: Back pain
     Dosage: 60 MILLIGRAM (AT ONE CAPSULE IN THE MORNING AND EVENING)
     Route: 048
     Dates: start: 20160817, end: 2016
  36. SKENAN [Interacting]
     Active Substance: MORPHINE SULFATE
     Indication: Back pain
     Dosage: THERAPY START DATE: //2016THERAPY END DATE: //2016
     Route: 065
     Dates: start: 2016, end: 2016
  37. SKENAN [Interacting]
     Active Substance: MORPHINE SULFATE
     Dosage: UNK
     Route: 065
     Dates: start: 20160902, end: 20160905
  38. SKENAN [Interacting]
     Active Substance: MORPHINE SULFATE
     Dosage: 1 DOSAGE FORM, DAILY (1 DOSAGE FORM, 1/DAY THERAPY START AND END DATE //2016)
     Route: 048
     Dates: start: 201607, end: 2016
  39. SKENAN [Interacting]
     Active Substance: MORPHINE SULFATE
     Dosage: THE DOCTOR PRESCRIBED HIM OVER A PERIOD BETWEEN 28-JUL-2016 AND 05-SEP-2016
     Route: 065
  40. SKENAN [Interacting]
     Active Substance: MORPHINE SULFATE
     Dosage: UNK
     Route: 065
     Dates: start: 201608, end: 20160908
  41. SKENAN [Interacting]
     Active Substance: MORPHINE SULFATE
     Dosage: 10 MILLIGRAM
     Route: 065
  42. SKENAN [Interacting]
     Active Substance: MORPHINE SULFATE
     Dosage: 60 MILLIGRAM
     Route: 065
     Dates: start: 20160902, end: 20160905
  43. CLOBAZAM [Interacting]
     Active Substance: CLOBAZAM
     Indication: Product used for unknown indication
     Dosage: UNK
     Route: 048
     Dates: start: 20160824, end: 2016
  44. CLOBAZAM [Interacting]
     Active Substance: CLOBAZAM
     Dosage: UNK
     Route: 065
  45. CLOBAZAM [Interacting]
     Active Substance: CLOBAZAM
     Dosage: UNK
     Route: 065
     Dates: start: 201608, end: 20160908
  46. CLOBAZAM [Interacting]
     Active Substance: CLOBAZAM
     Dosage: 10 MILLIGRAM
     Route: 048
     Dates: start: 20160824, end: 20160908
  47. ARTANE [Suspect]
     Active Substance: TRIHEXYPHENIDYL HYDROCHLORIDE
     Indication: Product used for unknown indication
     Dosage: UNK
     Route: 048
     Dates: start: 20160810, end: 2016
  48. ARTANE [Suspect]
     Active Substance: TRIHEXYPHENIDYL HYDROCHLORIDE
     Dosage: UNK
     Route: 065
  49. ARTANE [Suspect]
     Active Substance: TRIHEXYPHENIDYL HYDROCHLORIDE
     Dosage: 5 MILLIGRAM
     Route: 048
     Dates: start: 201608, end: 20160908
  50. ARTANE [Suspect]
     Active Substance: TRIHEXYPHENIDYL HYDROCHLORIDE
     Dosage: 5 MILLIGRAM
     Route: 065
     Dates: start: 20160810, end: 2016
  51. QUETIAPINE FUMARATE [Suspect]
     Active Substance: QUETIAPINE FUMARATE
     Indication: Product used for unknown indication
     Dosage: UNK
     Route: 065
     Dates: start: 20160830, end: 2016
  52. QUETIAPINE FUMARATE [Suspect]
     Active Substance: QUETIAPINE FUMARATE
     Dosage: 500 MILLIGRAM
     Route: 065
  53. MIANSERIN HYDROCHLORIDE [Suspect]
     Active Substance: MIANSERIN HYDROCHLORIDE
     Indication: Back pain
     Dosage: 30 MILLIGRAM (THE DOCTOR PRESCRIBED HIM OVER A PERIOD BETWEEN 28-JUL-2016 AND 05-SEP-2016)
     Route: 048
     Dates: start: 20160728, end: 20160905
  54. MIANSERIN HYDROCHLORIDE [Suspect]
     Active Substance: MIANSERIN HYDROCHLORIDE
     Indication: Bipolar disorder
     Dosage: UNK
     Route: 065
  55. MIANSERIN HYDROCHLORIDE [Suspect]
     Active Substance: MIANSERIN HYDROCHLORIDE
     Indication: Depression
  56. MIANSERIN HYDROCHLORIDE [Suspect]
     Active Substance: MIANSERIN HYDROCHLORIDE
     Indication: Back pain
  57. MIANSERIN HYDROCHLORIDE [Suspect]
     Active Substance: MIANSERIN HYDROCHLORIDE
     Indication: Psychiatric symptom
  58. FENTANYL [Interacting]
     Active Substance: FENTANYL
     Indication: Back pain
     Dosage: THERAPY START AND END DATE://2016)
     Route: 062
     Dates: start: 2016, end: 2016
  59. PAROXETINE [Suspect]
     Active Substance: PAROXETINE
     Indication: Back pain
     Dosage: PAROXETINE 20 MG/UNK THERAPY START DATE: //2016 THERAPY END DATE: //2016
     Route: 065
     Dates: start: 2016, end: 2016
  60. PAROXETINE [Suspect]
     Active Substance: PAROXETINE
     Indication: Product used for unknown indication
     Dosage: UNK
     Route: 065
  61. PAROXETINE [Suspect]
     Active Substance: PAROXETINE
     Indication: Back pain
     Dosage: ONE TABLET IN THE MORNING, ONE AT NOON AND ONE IN THE EVENING
     Route: 065
  62. PAROXETINE [Suspect]
     Active Substance: PAROXETINE
     Dosage: 20 MILLIGRAM
     Route: 065
  63. PAROXETINE [Suspect]
     Active Substance: PAROXETINE
     Dosage: UNK
     Route: 065
     Dates: start: 201608, end: 20160908
  64. PAROXETINE [Suspect]
     Active Substance: PAROXETINE
     Dosage: UNK
     Route: 048
     Dates: start: 20160829, end: 2016
  65. CODEINE PHOSPHATE\IBUPROFEN [Interacting]
     Active Substance: CODEINE PHOSPHATE\IBUPROFEN
     Indication: Back pain
     Dosage: 1 DOSAGE FORM 3/DAY. THERAPY START DATE: //2016THERAPY END DATE: //2016.
     Route: 048
     Dates: start: 2016, end: 2016
  66. CODEINE PHOSPHATE\IBUPROFEN [Interacting]
     Active Substance: CODEINE PHOSPHATE\IBUPROFEN
     Indication: Back pain
     Dosage: 3 TIME A DAY, 1 IN THE MORNING, 1 AT NOON AND 1 IN THE EVENING),
     Route: 048
  67. CODEINE PHOSPHATE\IBUPROFEN [Interacting]
     Active Substance: CODEINE PHOSPHATE\IBUPROFEN
     Dosage: 1 DOSAGE FORM, 3/DAY  (THERAPY START AND END DATE://2016)
     Route: 065
  68. CODEINE PHOSPHATE\IBUPROFEN [Interacting]
     Active Substance: CODEINE PHOSPHATE\IBUPROFEN
     Dosage: 1 DOSAGE FORMTHERAPY START DATE: //2016 THERAPY END DATE: //2016
     Dates: start: 20160902, end: 2016
  69. CODEINE PHOSPHATE\IBUPROFEN [Interacting]
     Active Substance: CODEINE PHOSPHATE\IBUPROFEN
     Dosage: 3 TIME A DAY, 1 IN THE MORNING, 1 AT NOON AND 1 IN THE EVENING),
  70. ACETAMINOPHEN\CODEINE PHOSPHATE [Interacting]
     Active Substance: ACETAMINOPHEN\CODEINE PHOSPHATE
     Indication: Product used for unknown indication
     Dosage: 500 MILLIGRAM
     Route: 048
     Dates: start: 2016, end: 2016
  71. ACETAMINOPHEN\CODEINE PHOSPHATE [Interacting]
     Active Substance: ACETAMINOPHEN\CODEINE PHOSPHATE
     Dosage: UNK
     Route: 048
     Dates: start: 2016, end: 2016
  72. ACETAMINOPHEN\CODEINE PHOSPHATE [Interacting]
     Active Substance: ACETAMINOPHEN\CODEINE PHOSPHATE
     Dosage: UNK
     Route: 065
  73. CLONAZEPAM [Interacting]
     Active Substance: CLONAZEPAM
     Indication: Product used for unknown indication
     Dosage: UNK
     Route: 065
  74. CLONAZEPAM [Interacting]
     Active Substance: CLONAZEPAM
     Dosage: 10 MILLIGRAM
     Route: 065
  75. TRAMADOL HYDROCHLORIDE [Suspect]
     Active Substance: TRAMADOL HYDROCHLORIDE
     Indication: Back pain
     Dosage: UNK THERAPY START DATE: //2016 THERAPY END DATE: //2016 (UNK (AT ONE TABLET IN THE MORNING AND EVENI
     Route: 048
     Dates: start: 20160903, end: 2016
  76. TRAMADOL HYDROCHLORIDE [Suspect]
     Active Substance: TRAMADOL HYDROCHLORIDE
     Dosage: UNK
     Route: 065
  77. FENTANYL [Interacting]
     Active Substance: FENTANYL
     Indication: Back pain
     Dosage: UNK THERAPY START DATE: //2016 THERAPY END DATE: //2016/DUROGESIC
     Route: 003
     Dates: start: 20160726, end: 2016
  78. FENTANYL [Interacting]
     Active Substance: FENTANYL
     Indication: Back pain
     Dosage: UNK
     Route: 065
  79. FENTANYL [Interacting]
     Active Substance: FENTANYL
     Dosage: THERAPY START DATE: //2016THERAPY END DATE: //2016/DUROGESIC. THE DOCTOR PRESCRIBED HIM OVER A PERIO
     Route: 062
     Dates: start: 2016, end: 2016
  80. FENTANYL [Interacting]
     Active Substance: FENTANYL
     Dosage: 12 MICROGRAM
     Route: 065
     Dates: start: 2016, end: 2016
  81. CODEINE PHOSPHATE\IBUPROFEN [Interacting]
     Active Substance: CODEINE PHOSPHATE\IBUPROFEN
     Indication: Product used for unknown indication
     Dosage: UNK
     Route: 048
     Dates: start: 20160902, end: 2016
  82. CODEINE PHOSPHATE\IBUPROFEN [Interacting]
     Active Substance: CODEINE PHOSPHATE\IBUPROFEN
     Indication: Back pain
     Dosage: UNK
     Route: 048
     Dates: start: 20160902, end: 2016
  83. NIFUROXAZIDE [Interacting]
     Active Substance: NIFUROXAZIDE
     Indication: Product used for unknown indication
     Dosage: UNK
     Route: 048
     Dates: start: 2016, end: 2016
  84. QUETIAPINE FUMARATE [Suspect]
     Active Substance: QUETIAPINE FUMARATE
     Indication: Product used for unknown indication
     Dosage: UNK
     Route: 048
     Dates: start: 20160830, end: 2016
  85. QUETIAPINE FUMARATE [Suspect]
     Active Substance: QUETIAPINE FUMARATE
     Dosage: 500 MILLIGRAM
     Route: 048
     Dates: start: 20160830, end: 2016
  86. OXAZEPAM [Suspect]
     Active Substance: OXAZEPAM
     Indication: Psychiatric symptom
     Dosage: UNK
     Route: 048
  87. OXAZEPAM [Suspect]
     Active Substance: OXAZEPAM
     Indication: Depression
  88. OXAZEPAM [Suspect]
     Active Substance: OXAZEPAM
     Indication: Bipolar disorder
  89. ACETAMINOPHEN\TRAMADOL [Suspect]
     Active Substance: ACETAMINOPHEN\TRAMADOL
     Indication: Product used for unknown indication
     Dosage: UNKNOWN
     Route: 065
  90. MEPHENESIN [Suspect]
     Active Substance: MEPHENESIN
     Indication: Product used for unknown indication
     Dosage: UNK
     Route: 065
  91. COCAINE [Suspect]
     Active Substance: COCAINE
     Indication: Product used for unknown indication
     Dosage: UNK
     Route: 065
  92. QUETIAPINE FUMARATE [Suspect]
     Active Substance: QUETIAPINE FUMARATE
     Indication: Product used for unknown indication
     Dosage: UNK
     Route: 048
     Dates: start: 20160830, end: 2016
  93. NORDAZEPAM [Interacting]
     Active Substance: NORDAZEPAM
     Indication: Product used for unknown indication
     Dosage: UNKNOWN
     Route: 065
  94. TEMAZEPAM [Suspect]
     Active Substance: TEMAZEPAM
     Indication: Product used for unknown indication
     Dosage: UNK
     Route: 065
  95. THIOCOLCHICOSIDE [Suspect]
     Active Substance: THIOCOLCHICOSIDE
     Indication: Product used for unknown indication
     Dosage: UNK
     Route: 048
     Dates: start: 2016, end: 2016
  96. NAFRONYL [Suspect]
     Active Substance: NAFRONYL
     Indication: Product used for unknown indication
     Dosage: UNK
     Route: 065
  97. OXAZEPAM [Interacting]
     Active Substance: OXAZEPAM
     Indication: Product used for unknown indication
     Dosage: UNK
     Route: 065
  98. IBUPROFEN [Suspect]
     Active Substance: IBUPROFEN
     Indication: Back pain
     Dosage: UNK
     Route: 048
     Dates: start: 20160902, end: 2016
  99. AMISULPRIDE [Suspect]
     Active Substance: AMISULPRIDE
     Indication: Psychiatric symptom
     Dosage: UNK
     Route: 048
  100. AMISULPRIDE [Suspect]
     Active Substance: AMISULPRIDE
     Indication: Depression
  101. AMISULPRIDE [Suspect]
     Active Substance: AMISULPRIDE
     Indication: Bipolar disorder
  102. AMISULPRIDE [Suspect]
     Active Substance: AMISULPRIDE
     Indication: Schizophrenia
  103. CODEINE [Interacting]
     Active Substance: CODEINE
     Indication: Product used for unknown indication
     Dosage: UNK
     Route: 065
  104. ACETAMINOPHEN [Interacting]
     Active Substance: ACETAMINOPHEN
     Indication: Back pain
     Dosage: UNK
     Route: 065
     Dates: start: 2016, end: 2016
  105. PRAZEPAM [Suspect]
     Active Substance: PRAZEPAM
     Indication: Product used for unknown indication
     Dosage: UNK
     Route: 048
     Dates: start: 2016, end: 2016
  106. AMISULPRIDE [Suspect]
     Active Substance: AMISULPRIDE
     Indication: Bipolar disorder
     Dosage: UNKNOWN
     Route: 065
  107. ZOPICLONE [Interacting]
     Active Substance: ZOPICLONE
     Indication: Depression
     Dosage: UNK
     Route: 048
  108. ZOPICLONE [Interacting]
     Active Substance: ZOPICLONE
     Indication: Psychiatric symptom
  109. ALPRAZOLAM [Interacting]
     Active Substance: ALPRAZOLAM
     Indication: Depression
     Dosage: UNK
     Route: 048
  110. ALPRAZOLAM [Interacting]
     Active Substance: ALPRAZOLAM
     Indication: Psychiatric symptom
  111. CLONAZEPAM [Interacting]
     Active Substance: CLONAZEPAM
     Indication: Product used for unknown indication
     Dosage: 10 MILLIGRAM
     Route: 065
  112. BROMAZEPAM [Interacting]
     Active Substance: BROMAZEPAM
     Indication: Product used for unknown indication
     Dosage: 6 MILLIGRAM, DAILY, (3 TIMES DAILY)
     Route: 065
  113. ZOPICLONE [Suspect]
     Active Substance: ZOPICLONE
     Indication: Depression
     Dosage: UNK
     Route: 065
  114. ZOPICLONE [Suspect]
     Active Substance: ZOPICLONE
     Indication: Psychiatric symptom
     Dosage: UNK
     Route: 048
  115. PAROXETINE HYDROCHLORIDE [Suspect]
     Active Substance: PAROXETINE HYDROCHLORIDE
     Indication: Back pain
     Dosage: 20 MILLIGRAM
     Route: 048
     Dates: start: 20160829, end: 20160908
  116. PAROXETINE HYDROCHLORIDE [Suspect]
     Active Substance: PAROXETINE HYDROCHLORIDE
     Indication: Back pain
  117. CLOTIAZEPAM [Suspect]
     Active Substance: CLOTIAZEPAM
     Indication: Product used for unknown indication
     Dosage: 3 DOSAGE FORM, QD (3 TABLETS PER DAY FOR A MONTH)
     Route: 048
     Dates: start: 20160830, end: 2016
  118. MIANSERIN HYDROCHLORIDE [Concomitant]
     Active Substance: MIANSERIN HYDROCHLORIDE
     Indication: Depression
     Dosage: UNK
     Route: 048
  119. MIANSERIN HYDROCHLORIDE [Concomitant]
     Active Substance: MIANSERIN HYDROCHLORIDE
     Indication: Psychiatric symptom
  120. ARTANE [Concomitant]
     Active Substance: TRIHEXYPHENIDYL HYDROCHLORIDE
     Indication: Depression
     Dosage: UNK
     Route: 048
  121. ALPRAZOLAM [Concomitant]
     Active Substance: ALPRAZOLAM
     Indication: Depression
     Dosage: UNK
     Route: 048
  122. ALPRAZOLAM [Concomitant]
     Active Substance: ALPRAZOLAM
     Indication: Psychiatric symptom
     Dosage: UNK
     Route: 048
  123. VALIUM [Concomitant]
     Active Substance: DIAZEPAM
     Indication: Psychiatric symptom
     Dosage: UNK
     Route: 048
  124. VALIUM [Concomitant]
     Active Substance: DIAZEPAM
     Indication: Depression
  125. AMISULPRIDE [Concomitant]
     Active Substance: AMISULPRIDE
     Indication: Psychiatric symptom
     Dosage: UNK
     Route: 048
  126. AMISULPRIDE [Concomitant]
     Active Substance: AMISULPRIDE
     Indication: Depression
  127. AMISULPRIDE [Concomitant]
     Active Substance: AMISULPRIDE
     Indication: Bipolar disorder
  128. AMISULPRIDE [Concomitant]
     Active Substance: AMISULPRIDE
     Indication: Schizophrenia
  129. OXAZEPAM [Concomitant]
     Active Substance: OXAZEPAM
     Indication: Psychiatric symptom
     Dosage: UNK
     Route: 048
  130. OXAZEPAM [Concomitant]
     Active Substance: OXAZEPAM
     Indication: Depression
  131. OXAZEPAM [Concomitant]
     Active Substance: OXAZEPAM
     Indication: Bipolar disorder

REACTIONS (65)
  - Encephalopathy [Fatal]
  - Hepatitis acute [Fatal]
  - Myocarditis [Fatal]
  - Myocardial infarction [Fatal]
  - Hepatic cytolysis [Fatal]
  - Accidental poisoning [Fatal]
  - Respiratory depression [Fatal]
  - Cardiomyopathy [Fatal]
  - Labelled drug-drug interaction issue [Fatal]
  - Overdose [Fatal]
  - Somnolence [Fatal]
  - Hepatitis acute [Fatal]
  - Respiratory depression [Fatal]
  - Encephalopathy [Fatal]
  - Myocarditis [Fatal]
  - Coma [Fatal]
  - Coma [Fatal]
  - Cardiomyopathy [Fatal]
  - Somnolence [Fatal]
  - Confusional state [Fatal]
  - Jaundice [Fatal]
  - Drug screen false positive [Fatal]
  - Hyperglycaemia [Fatal]
  - Pulmonary oedema [Fatal]
  - Cholecystitis infective [Fatal]
  - Pancreas infection [Fatal]
  - Toxicity to various agents [Fatal]
  - Coronary artery stenosis [Fatal]
  - Hepatic enzyme increased [Fatal]
  - Acute pulmonary oedema [Fatal]
  - Cardio-respiratory arrest [Fatal]
  - Hyperglycaemia [Fatal]
  - White blood cell count increased [Fatal]
  - Stenosis [Fatal]
  - Gallbladder injury [Fatal]
  - Drug abuse [Fatal]
  - Intentional self-injury [Fatal]
  - Coronary artery stenosis [Fatal]
  - Cardiac disorder [Fatal]
  - Aspiration [Fatal]
  - Ketosis [Fatal]
  - Necrosis [Fatal]
  - Hypotension [Unknown]
  - Arrhythmia [Unknown]
  - Synovitis [Unknown]
  - Product prescribing issue [Unknown]
  - Hepatobiliary disease [Unknown]
  - Hepatic failure [Unknown]
  - Nephropathy toxic [Unknown]
  - Liver injury [Unknown]
  - Cardiac disorder [Unknown]
  - Asteatosis [Unknown]
  - Aggression [Unknown]
  - Thirst [Unknown]
  - Inflammation [Unknown]
  - Leukocytosis [Unknown]
  - Hypersomnia [Unknown]
  - Logorrhoea [Unknown]
  - Monocytosis [Unknown]
  - Panic attack [Unknown]
  - Intentional product misuse [Unknown]
  - Bladder injury [Unknown]
  - Coronary artery disease [Unknown]
  - Prescribed overdose [Unknown]
  - Pancreatic injury [Unknown]

NARRATIVE: CASE EVENT DATE: 20160101
